FAERS Safety Report 8159633-1 (Version None)
Quarter: 2012Q1

REPORT INFORMATION
  Report Type: 
  Country: None (occurrence: None)
  Receive Date: 20120223
  Receipt Date: 20120216
  Transmission Date: 20120608
  Serious: Yes (Hospitalization)
  Sender: FDA-Public Use
  Company Number: US-ROCHE-1041886

PATIENT
  Sex: Male

DRUGS (1)
  1. ZELBORAF [Suspect]
     Indication: PRODUCT USED FOR UNKNOWN INDICATION

REACTIONS (7)
  - OEDEMA PERIPHERAL [None]
  - MYALGIA [None]
  - ORAL CANDIDIASIS [None]
  - FATIGUE [None]
  - BLISTER [None]
  - RASH GENERALISED [None]
  - ARTHRALGIA [None]
